FAERS Safety Report 5815075-2 (Version None)
Quarter: 2008Q3

REPORT INFORMATION
  Report Type: 
  Country: None (occurrence: None)
  Receive Date: 20080718
  Receipt Date: 20080714
  Transmission Date: 20090109
  Serious: Yes (Other)
  Sender: FDA-Public Use
  Company Number: CN-GENENTECH-257427

PATIENT
  Age: 40 Year
  Sex: Male

DRUGS (4)
  1. MABTHERA [Suspect]
     Indication: PEMPHIGUS
     Dosage: 600 MG, UNK
     Route: 042
     Dates: start: 20080201, end: 20080325
  2. MABTHERA [Suspect]
     Dates: start: 20080312
  3. AVELOX [Concomitant]
     Indication: DRUG USE FOR UNKNOWN INDICATION
  4. VANCOMYCIN HCL [Concomitant]
     Indication: DRUG USE FOR UNKNOWN INDICATION

REACTIONS (3)
  - CHEST DISCOMFORT [None]
  - HAEMOLYTIC ANAEMIA [None]
  - PALPITATIONS [None]
